FAERS Safety Report 7802627-3 (Version None)
Quarter: 2011Q4

REPORT INFORMATION
  Report Type: 
  Country: None (occurrence: None)
  Receive Date: 20111007
  Receipt Date: 20110926
  Transmission Date: 20120403
  Serious: Yes (Other)
  Sender: FDA-Public Use
  Company Number: PHHY2011GB87244

PATIENT

DRUGS (2)
  1. EXJADE [Suspect]
     Indication: APLASIA PURE RED CELL
     Route: 065
  2. CYCLOSPORINE [Suspect]
     Route: 065

REACTIONS (2)
  - CARDIAC FAILURE [None]
  - RESPIRATORY FAILURE [None]
